FAERS Safety Report 6608260-3 (Version None)
Quarter: 2010Q1

REPORT INFORMATION
  Report Type: 
  Country: None (occurrence: None)
  Receive Date: 20100301
  Receipt Date: 20100224
  Transmission Date: 20100710
  Serious: Yes (Other)
  Sender: FDA-Public Use
  Company Number: FR-ROCHE-687412

PATIENT
  Sex: Female

DRUGS (1)
  1. RIVOTRIL [Suspect]
     Indication: DRUG USE FOR UNKNOWN INDICATION
     Route: 065
     Dates: start: 19850101

REACTIONS (5)
  - ANXIETY [None]
  - BLINDNESS [None]
  - MOVEMENT DISORDER [None]
  - PAIN IN EXTREMITY [None]
  - SUICIDAL IDEATION [None]
